FAERS Safety Report 8349312-X (Version None)
Quarter: 2012Q2

REPORT INFORMATION
  Report Type: 
  Country: None (occurrence: None)
  Receive Date: 20120510
  Receipt Date: 20120507
  Transmission Date: 20120825
  Serious: Yes (Other)
  Sender: FDA-Public Use
  Company Number: PHEH2012US006621

PATIENT
  Sex: Male
  Weight: 80.726 kg

DRUGS (8)
  1. ENABLEX [Concomitant]
     Indication: HYPERTONIC BLADDER
  2. ENABLEX [Concomitant]
     Indication: NEUROGENIC BLADDER
  3. GILENYA [Suspect]
     Indication: RELAPSING-REMITTING MULTIPLE SCLEROSIS
     Dosage: 0.5 MG, QD
     Route: 048
  4. LEXAPRO [Concomitant]
     Indication: DEPRESSION
     Dosage: 20 MG, DAILY
  5. PERCOCET [Concomitant]
     Indication: BACK PAIN
  6. BACLOFEN [Concomitant]
     Indication: MUSCLE SPASTICITY
  7. DIAZEPAM [Concomitant]
     Indication: MUSCLE SPASMS
  8. GILENYA [Suspect]
     Dosage: 0.5 MG, QD
     Route: 048

REACTIONS (12)
  - MULTIPLE SCLEROSIS RELAPSE [None]
  - GAIT SPASTIC [None]
  - OPEN WOUND [None]
  - CYST [None]
  - ABSCESS [None]
  - SKIN INJURY [None]
  - DECREASED VIBRATORY SENSE [None]
  - PERONEAL NERVE PALSY [None]
  - MYCOBACTERIUM MARINUM INFECTION [None]
  - SKIN LESION [None]
  - EXTENSOR PLANTAR RESPONSE [None]
  - MOTOR DYSFUNCTION [None]
